FAERS Safety Report 19605168 (Version 1)
Quarter: 2021Q3

REPORT INFORMATION
  Report Type: Report from Study
  Country: US (occurrence: US)
  Receive Date: 20210723
  Receipt Date: 20210723
  Transmission Date: 20211014
  Serious: Yes (Other)
  Sender: FDA-Public Use
  Company Number: US-MYLANLABS-2021M1044916

PATIENT
  Sex: Female

DRUGS (5)
  1. CARBOPLATIN. [Suspect]
     Active Substance: CARBOPLATIN
     Indication: BRAIN STEM GLIOMA
     Dosage: UNK UNK, CYCLE, RECEIVED 2 CYCLES
     Route: 065
  2. CARMUSTINE. [Suspect]
     Active Substance: CARMUSTINE
     Indication: BRAIN STEM GLIOMA
     Route: 065
  3. LONAFARNIB [Suspect]
     Active Substance: LONAFARNIB
     Indication: BRAIN STEM GLIOMA
     Route: 065
  4. VINCRISTINE [Suspect]
     Active Substance: VINCRISTINE
     Indication: BRAIN STEM GLIOMA
     Dosage: UNK UNK, CYCLE, RECEIVED 2 CYCLES
     Route: 065
  5. O6?BENZYLGUANINE [Suspect]
     Active Substance: 6-O-BENZYLGUANINE
     Indication: BRAIN STEM GLIOMA
     Route: 065

REACTIONS (1)
  - Drug ineffective [Unknown]
